FAERS Safety Report 15343325 (Version 3)
Quarter: 2025Q2

REPORT INFORMATION
  Report Type: Spontaneous
  Country: US (occurrence: US)
  Receive Date: 20180903
  Receipt Date: 20250430
  Transmission Date: 20250717
  Serious: Yes (Hospitalization, Other)
  Sender: ROCHE
  Company Number: US-ROCHE-2176536

PATIENT
  Age: 68 Year
  Sex: Female
  Weight: 71.73 kg

DRUGS (10)
  1. RITUXAN [Suspect]
     Active Substance: RITUXIMAB
     Indication: Immune thrombocytopenia
     Route: 042
     Dates: start: 20180501, end: 20180508
  2. DIAZEPAM [Suspect]
     Active Substance: DIAZEPAM
     Indication: Anxiety
     Route: 065
     Dates: start: 20180522
  3. NEXIUM [Concomitant]
     Active Substance: ESOMEPRAZOLE MAGNESIUM
     Indication: Gastrooesophageal reflux disease
     Dosage: DAILY
  4. PREDNISONE [Concomitant]
     Active Substance: PREDNISONE
     Indication: Immune thrombocytopenia
     Dosage: 2.5 M/D DAILY
     Route: 048
     Dates: end: 20180522
  5. PREDNISONE [Concomitant]
     Active Substance: PREDNISONE
     Route: 048
  6. THYROID [Concomitant]
     Active Substance: LEVOTHYROXINE\LIOTHYRONINE
     Dosage: DAILY
     Route: 048
  7. BENADRYL [Concomitant]
     Active Substance: DIPHENHYDRAMINE HYDROCHLORIDE
  8. REGLAN [Concomitant]
     Active Substance: METOCLOPRAMIDE HYDROCHLORIDE
     Dosage: PRN
  9. ZOFRAN [Concomitant]
     Active Substance: ONDANSETRON HYDROCHLORIDE
  10. DELTASONE [Concomitant]
     Active Substance: PREDNISONE

REACTIONS (19)
  - Serum sickness [Recovered/Resolved with Sequelae]
  - Asthenia [Recovered/Resolved with Sequelae]
  - Dizziness [Recovered/Resolved with Sequelae]
  - Nausea [Recovered/Resolved with Sequelae]
  - Hallucination [Recovered/Resolved with Sequelae]
  - Intentional product use issue [Unknown]
  - Off label use [Unknown]
  - Acute kidney injury [Unknown]
  - Hypovolaemia [Unknown]
  - Pyrexia [Unknown]
  - Sepsis [Unknown]
  - Lactic acidosis [Unknown]
  - Immunosuppression [Unknown]
  - Pleural effusion [Unknown]
  - Aortic arteriosclerosis [Unknown]
  - Renal cyst [Unknown]
  - Spinal osteoarthritis [Unknown]
  - Atelectasis [Unknown]
  - Dehydration [Unknown]
